FAERS Safety Report 5786907-1 (Version None)
Quarter: 2008Q2

REPORT INFORMATION
  Report Type: 
  Country: None (occurrence: None)
  Receive Date: 20080623
  Receipt Date: 20080623
  Transmission Date: 20081010
  Serious: Yes (Other)
  Sender: FDA-Public Use
  Company Number: None

PATIENT
  Sex: Male
  Weight: 84.8226 kg

DRUGS (1)
  1. LEFLUNOMIDE [Suspect]
     Indication: RHEUMATOID ARTHRITIS
     Dosage: 20 MG ONE/ DAY PO
     Route: 048
     Dates: start: 20080409, end: 20080514

REACTIONS (2)
  - HAEMATOCHEZIA [None]
  - PROTHROMBIN TIME PROLONGED [None]
